FAERS Safety Report 6464126-3 (Version None)
Quarter: 2009Q4

REPORT INFORMATION
  Report Type: 
  Country: None (occurrence: None)
  Receive Date: 20091201
  Receipt Date: 20091120
  Transmission Date: 20100525
  Serious: Yes (Hospitalization)
  Sender: FDA-Public Use
  Company Number: US-ELI_LILLY_AND_COMPANY-US200911005879

PATIENT
  Sex: Female

DRUGS (15)
  1. BYETTA [Suspect]
     Indication: DIABETES MELLITUS
     Dosage: 10 UG, UNKNOWN
     Dates: start: 20060101, end: 20090601
  2. LANTUS [Concomitant]
     Dosage: 30 U, UNKNOWN
  3. STARLIX [Concomitant]
     Dosage: UNK, UNKNOWN
  4. FOSAMAX [Concomitant]
     Dosage: 70 MG, WEEKLY (1/W)
  5. FUROSEMIDE [Concomitant]
     Dosage: 40 MG, UNKNOWN
  6. LIPITOR [Concomitant]
     Dosage: 10 MG, UNKNOWN
  7. PRILOSEC [Concomitant]
     Dosage: 20 MG, UNKNOWN
  8. SULFAMETIZOL [Concomitant]
     Dosage: UNK, 3/W
  9. KLOR-CON [Concomitant]
  10. TOPIRAMATE [Concomitant]
     Dosage: UNK, UNKNOWN
  11. OXYCODONE HCL [Concomitant]
     Dosage: UNK, AS NEEDED
  12. ATIVAN [Concomitant]
     Dosage: 1 MG, MONTHLY (1/M)
  13. OSCAL [Concomitant]
     Dosage: 500 MG, 3/D
  14. MAGNESIUM OXIDE [Concomitant]
     Dosage: 400 MG, 3/D
  15. VITAMIN D [Concomitant]
     Dosage: 2000 IU, UNKNOWN

REACTIONS (5)
  - CONGENITAL CARDIOVASCULAR ANOMALY [None]
  - DIABETES MELLITUS [None]
  - MEMORY IMPAIRMENT [None]
  - OFF LABEL USE [None]
  - RASH [None]
